FAERS Safety Report 6945075-0 (Version None)
Quarter: 2010Q3

REPORT INFORMATION
  Report Type: 
  Country: None (occurrence: None)
  Receive Date: 20100827
  Receipt Date: 20100822
  Transmission Date: 20110219
  Serious: Yes (Death)
  Sender: FDA-Public Use
  Company Number: PHHY2010MX55325

PATIENT
  Age: 77 Year
  Sex: Male

DRUGS (4)
  1. DIOVAN HCT [Suspect]
     Indication: HYPERTENSION
     Dosage: 1 TABLET (160/25 MG) DAILY
     Route: 048
     Dates: start: 20100301
  2. LASIX [Concomitant]
     Indication: URINARY TRACT DISORDER
     Dosage: 1 TABLET DAILY
     Route: 048
     Dates: start: 20100301
  3. MELLITRON [Concomitant]
     Indication: BLOOD GLUCOSE ABNORMAL
     Dosage: 1 TABLET DAILY
     Route: 048
     Dates: start: 20100801
  4. FINASTERIDE [Concomitant]
     Dosage: 1 TABLET DAILY
     Route: 048

REACTIONS (1)
  - DEATH [None]
